FAERS Safety Report 15304824 (Version 1)
Quarter: 2018Q3

REPORT INFORMATION
  Report Type: Report from Study
  Country: None (occurrence: US)
  Receive Date: 20180822
  Receipt Date: 20180822
  Transmission Date: 20181010
  Serious: Yes (Other)
  Sender: FDA-Public Use
  Company Number: US-ABBVIE-18K-163-2452798-00

PATIENT
  Age: 41 Year
  Sex: Male

DRUGS (1)
  1. HUMIRA [Suspect]
     Active Substance: ADALIMUMAB
     Indication: PSORIASIS
     Route: 058
     Dates: start: 20180504, end: 20180622

REACTIONS (6)
  - Hepatic cirrhosis [Unknown]
  - Back pain [Not Recovered/Not Resolved]
  - Hepatomegaly [Unknown]
  - Jaundice [Unknown]
  - Pancreatitis [Unknown]
  - Pain [Unknown]

NARRATIVE: CASE EVENT DATE: 2018
